FAERS Safety Report 7646397-0 (Version None)
Quarter: 2011Q3

REPORT INFORMATION
  Report Type: 
  Country: None (occurrence: None)
  Receive Date: 20110725
  Receipt Date: 20110707
  Transmission Date: 20111222
  Serious: Yes (Other)
  Sender: FDA-Public Use
  Company Number: JHP201100335

PATIENT
  Age: 31 Year
  Sex: Male

DRUGS (13)
  1. DANTROLENE SODIUM [Suspect]
     Indication: HYPERTHERMIA MALIGNANT
     Dosage: 3944 MG, TOTAL, INTRAVENOUS
     Route: 042
  2. ZOFRAN [Concomitant]
  3. ROCURONIUM BROMIDE [Concomitant]
  4. MIDAZOLAM HYDROCHLORIDE [Concomitant]
  5. LIDOCAINE (LIDOCAINE HYDROCHLORIDE) [Concomitant]
  6. EPHEDRINE (EPHEDRINE HYDROCHLORIDE) [Concomitant]
  7. DESFLURANE [Concomitant]
  8. MANNITOL [Concomitant]
  9. PROPOFOL [Concomitant]
  10. ATROPINE SULFATE [Concomitant]
  11. FENTANYL [Concomitant]
  12. LASIX [Concomitant]
  13. BICARBONATE (SODIUM BICARBONATE) [Concomitant]

REACTIONS (4)
  - PHLEBITIS [None]
  - RESPIRATORY FAILURE [None]
  - RENAL IMPAIRMENT [None]
  - DISSEMINATED INTRAVASCULAR COAGULATION [None]
